FAERS Safety Report 8429365 (Version 3)
Quarter: 2013Q1

REPORT INFORMATION
  Report Type: Spontaneous
  Country: US (occurrence: None)
  Receive Date: 20120202
  Receipt Date: 20121206
  Transmission Date: 20140127
  Serious: Yes (Hospitalization, Other)
  Sender: FDA-Public Use
  Company Number: 2011027766

PATIENT
  Age: 47 Year
  Sex: Male
  Weight: 104.33 kg

DRUGS (20)
  1. HIZENTRA [Suspect]
     Indication: IMMUNODEFICIENCY COMMON VARIABLE
     Dosage: 15 G 1X/WEEK, INFUSED 75ML AT 20% SUBCUTANEOUS
     Route: 058
     Dates: start: 20110108
  2. LEXAPRO (ESCITALOPRAM OXALATE) [Concomitant]
  3. ZOLOFT (SERTRALINE) [Concomitant]
  4. FLECAINIDE (FLECAINIDE) [Concomitant]
  5. FUROSEMIDE (FUROSEMIDE) [Concomitant]
  6. LIPITOR (ATORVASTATIN CALCIUM) [Concomitant]
  7. DILANTIN (PHENYTOIN) [Concomitant]
  8. TRICOR (FENOFIBRATE) [Concomitant]
  9. METOPROLOL (METOPROLOL) [Concomitant]
  10. PULMICORT (BUDESONIDE) [Concomitant]
  11. ATROVENT (IPRATROPIUM BROMIDE) [Concomitant]
  12. ALBUTEROL (SALBUTAMOL) [Concomitant]
  13. ADVAIR DISKUS (SERETIDE /01420901/) [Concomitant]
  14. DUO-NEB (COMBIVENT /01261001/) [Concomitant]
  15. NASONEX (MOMETASONE FUROATE) [Concomitant]
  16. FISH OIL (FISH OIL) [Concomitant]
  17. ASPIRIN (ACETYLSALICYLIC ACID) [Concomitant]
  18. EXCEDRIN (EXCEDRIN /00214201/) [Concomitant]
  19. VITAMIN B-COMPLEX (VITAMIN B-COMPLEX /00282501/) [Concomitant]
  20. LISINOPRIL (LISINOPRIL) [Concomitant]

REACTIONS (6)
  - Pneumonia [None]
  - Fatigue [None]
  - Headache [None]
  - Pain [None]
  - Influenza like illness [None]
  - Myocardial infarction [None]
